FAERS Safety Report 18407840 (Version 3)
Quarter: 2020Q4

REPORT INFORMATION
  Report Type: Report from Study
  Country: US (occurrence: US)
  Receive Date: 20201021
  Receipt Date: 20201221
  Transmission Date: 20210114
  Serious: Yes (Hospitalization, Other)
  Sender: FDA-Public Use
  Company Number: US-BIOGEN-2020BI00935116

PATIENT
  Age: 61 Year
  Sex: Female

DRUGS (1)
  1. TYSABRI [Suspect]
     Active Substance: NATALIZUMAB
     Indication: MULTIPLE SCLEROSIS
     Route: 065
     Dates: start: 20140819

REACTIONS (6)
  - Infusion site extravasation [Unknown]
  - Fall [Recovered/Resolved]
  - Bile duct stenosis [Unknown]
  - Hepatic enzyme increased [Unknown]
  - Sepsis [Unknown]
  - Endometrial cancer metastatic [Unknown]

NARRATIVE: CASE EVENT DATE: 2020
